FAERS Safety Report 8925235 (Version 1)
Quarter: 2012Q4

REPORT INFORMATION
  Report Type: 
  Country: JP (occurrence: JP)
  Receive Date: 20121126
  Receipt Date: 20121126
  Transmission Date: 20130627
  Serious: Yes (Hospitalization)
  Sender: FDA-Public Use
  Company Number: JP-ASTELLAS-2012JP010867

PATIENT
  Sex: Female
  Weight: 60 kg

DRUGS (5)
  1. PROGRAF [Suspect]
     Indication: RHEUMATOID ARTHRITIS
     Dosage: 3 mg, UID/QD
     Route: 048
     Dates: start: 200711
  2. PREDNISOLONE [Concomitant]
     Indication: RHEUMATOID ARTHRITIS
     Dosage: 1 mg, UID/QD
     Route: 048
     Dates: start: 200607
  3. MUCOSTA [Concomitant]
     Indication: GASTRITIS
     Dosage: 100 mg, tid
     Route: 048
  4. MARZULENE-S [Concomitant]
     Indication: GASTRITIS
     Dosage: 2 g, Unknown/D
     Route: 048
  5. OMEPRAL /00661201/ [Concomitant]
     Indication: GASTRITIS
     Dosage: 10 mg, UID/QD
     Route: 048
     Dates: end: 20120813

REACTIONS (1)
  - Organising pneumonia [Recovering/Resolving]
